FAERS Safety Report 22370935 (Version 1)
Quarter: 2023Q2

REPORT INFORMATION
  Report Type: Spontaneous
  Country: JP (occurrence: JP)
  Receive Date: 20230526
  Receipt Date: 20230526
  Transmission Date: 20230722
  Serious: Yes (Hospitalization, Other)
  Sender: FDA-Public Use
  Company Number: JP-PFIZER INC-PV202200112739

PATIENT
  Age: 37 Year
  Sex: Male

DRUGS (9)
  1. TACROLIMUS [Suspect]
     Active Substance: TACROLIMUS
     Indication: Crohn^s disease
  2. INFLIXIMAB [Suspect]
     Active Substance: INFLIXIMAB
     Indication: Crohn^s disease
     Dosage: ADMINISTRATED 6 TIMES, EVERY 2 MONTHS
  3. MIZORIBINE [Suspect]
     Active Substance: MIZORIBINE
     Indication: Immunosuppressant drug therapy
  4. METHYLPREDNISOLONE [Suspect]
     Active Substance: METHYLPREDNISOLONE
     Indication: Immunosuppressant drug therapy
  5. FEBUXOSTAT [Concomitant]
     Active Substance: FEBUXOSTAT
  6. LOSARTAN [Concomitant]
     Active Substance: LOSARTAN
  7. FAMOTIDINE [Concomitant]
     Active Substance: FAMOTIDINE
  8. SULFAMETHOXAZOLE\TRIMETHOPRIM [Concomitant]
     Active Substance: SULFAMETHOXAZOLE\TRIMETHOPRIM
  9. TACROLIMUS [Suspect]
     Active Substance: TACROLIMUS
     Indication: Immunosuppressant drug therapy

REACTIONS (4)
  - Acute kidney injury [Recovered/Resolved]
  - Cystitis haemorrhagic [Recovered/Resolved]
  - Adenovirus interstitial nephritis [Recovered/Resolved]
  - Complications of transplanted kidney [Recovered/Resolved]
